FAERS Safety Report 20410866 (Version 4)
Quarter: 2023Q2

REPORT INFORMATION
  Report Type: Spontaneous
  Country: US (occurrence: US)
  Receive Date: 20220201
  Receipt Date: 20230503
  Transmission Date: 20230722
  Serious: No
  Sender: FDA-Public Use
  Company Number: US-SA-SAC20220128000111

PATIENT
  Age: 36 Year
  Sex: Female

DRUGS (5)
  1. DUPIXENT [Suspect]
     Active Substance: DUPILUMAB
     Indication: Dermatitis atopic
     Dosage: 300 MG, QOW
     Route: 058
     Dates: start: 20210629
  2. LEXAPRO [Concomitant]
     Active Substance: ESCITALOPRAM OXALATE
  3. NEXPLANON [Concomitant]
     Active Substance: ETONOGESTREL
  4. VITAMIN C [Concomitant]
     Active Substance: ASCORBIC ACID
  5. HERBALS\TURMERIC [Concomitant]
     Active Substance: HERBALS\TURMERIC

REACTIONS (6)
  - Perioral dermatitis [Unknown]
  - Dermatitis atopic [Recovered/Resolved]
  - Therapeutic response shortened [Unknown]
  - Rash [Recovered/Resolved]
  - Dermatitis atopic [Unknown]
  - Sleep disorder [Unknown]

NARRATIVE: CASE EVENT DATE: 20230418
